FAERS Safety Report 25119919 (Version 4)
Quarter: 2025Q2

REPORT INFORMATION
  Report Type: Spontaneous
  Country: JP (occurrence: JP)
  Receive Date: 20250325
  Receipt Date: 20250528
  Transmission Date: 20250717
  Serious: Yes (Death)
  Sender: OTSUKA
  Company Number: JP-OTSUKA-2025_002400

PATIENT
  Age: 74 Year
  Sex: Female

DRUGS (4)
  1. REXULTI [Suspect]
     Active Substance: BREXPIPRAZOLE
     Indication: Dementia Alzheimer^s type
     Dosage: 0.25 MG (0.5 TABLET), QD
     Route: 048
     Dates: start: 20250127, end: 20250310
  2. REXULTI [Suspect]
     Active Substance: BREXPIPRAZOLE
     Indication: Anger
     Dosage: 0.25 MG (0.5 TABLET), QD
     Route: 048
     Dates: start: 20241112, end: 20241208
  3. REXULTI [Suspect]
     Active Substance: BREXPIPRAZOLE
     Indication: Hyperkinesia
     Dosage: 0.5 MG (1 TABLET), QD
     Route: 048
     Dates: start: 20241209, end: 20250126
  4. REXULTI [Suspect]
     Active Substance: BREXPIPRAZOLE
     Indication: Soliloquy

REACTIONS (7)
  - Marasmus [Fatal]
  - Pallor [Unknown]
  - Pica [Unknown]
  - Posture abnormal [Recovering/Resolving]
  - Salivary hypersecretion [Unknown]
  - Extrapyramidal disorder [Unknown]
  - Prescribed underdose [Unknown]

NARRATIVE: CASE EVENT DATE: 20241112
